FAERS Safety Report 25245212 (Version 1)
Quarter: 2025Q2

REPORT INFORMATION
  Report Type: Spontaneous
  Country: RU (occurrence: RU)
  Receive Date: 20250428
  Receipt Date: 20250428
  Transmission Date: 20250717
  Serious: Yes (Other)
  Sender: ROCHE
  Company Number: RU-ROCHE-10000264704

PATIENT
  Sex: Female

DRUGS (6)
  1. TRASTUZUMAB [Suspect]
     Active Substance: TRASTUZUMAB
     Indication: Breast cancer stage IV
     Dosage: 6 MG/KG (8 MG/KG LOADING DOSE) BY IV DRIP, OR 600 MG SC
     Route: 042
     Dates: start: 201905
  2. PERJETA [Suspect]
     Active Substance: PERTUZUMAB
     Indication: Breast cancer stage IV
     Dosage: (840 MG LOADING DOSE)
     Route: 042
     Dates: start: 201905
  3. ADO-TRASTUZUMAB EMTANSINE [Suspect]
     Active Substance: ADO-TRASTUZUMAB EMTANSINE
     Indication: Breast cancer stage IV
     Route: 065
  4. DOCETAXEL [Suspect]
     Active Substance: DOCETAXEL
     Indication: Breast cancer stage IV
     Route: 042
     Dates: start: 201905
  5. ZOLEDRONIC ACID [Suspect]
     Active Substance: ZOLEDRONIC ACID
     Indication: Breast cancer stage IV
     Route: 042
     Dates: start: 201905
  6. FULVESTRANT [Suspect]
     Active Substance: FULVESTRANT
     Indication: Breast cancer stage IV
     Dosage: 500 MG 2 TIMES IN THE FIRST MONTH OF THERAPY
     Route: 065

REACTIONS (3)
  - Disease progression [Unknown]
  - Metastases to central nervous system [Unknown]
  - Thrombocytopenia [Unknown]
